FAERS Safety Report 21568686 (Version 2)
Quarter: 2022Q4

REPORT INFORMATION
  Report Type: Report from Study
  Country: FR (occurrence: FR)
  Receive Date: 20221108
  Receipt Date: 20221118
  Transmission Date: 20230112
  Serious: Yes (Hospitalization, Other)
  Sender: FDA-Public Use
  Company Number: FR-BRISTOL-MYERS SQUIBB COMPANY-2022-131469

PATIENT
  Age: 80 Year
  Sex: Female
  Weight: 63 kg

DRUGS (3)
  1. POMALIDOMIDE [Suspect]
     Active Substance: POMALIDOMIDE
     Indication: Primary amyloidosis
     Dosage: QD J1-J21/J28
     Route: 048
     Dates: start: 20220517, end: 20221025
  2. DEXAMETHASONE [Suspect]
     Active Substance: DEXAMETHASONE
     Indication: Primary amyloidosis
     Dosage: QW PO OR IV
     Route: 048
     Dates: start: 20220517, end: 20221025
  3. ISATUXIMAB [Suspect]
     Active Substance: ISATUXIMAB
     Indication: Primary amyloidosis
     Dosage: Q2W
     Route: 042
     Dates: start: 20220517, end: 20221018

REACTIONS (2)
  - Colitis [Recovered/Resolved]
  - Diverticulitis [Recovered/Resolved]

NARRATIVE: CASE EVENT DATE: 20221029
